FAERS Safety Report 8879726 (Version 2)
Quarter: 2013Q2

REPORT INFORMATION
  Report Type: Spontaneous
  Country: US (occurrence: US)
  Receive Date: 20121101
  Receipt Date: 20130522
  Transmission Date: 20140414
  Serious: No
  Sender: FDA-Public Use
  Company Number: US-009507513-1210USA008355

PATIENT
  Age: 59 Year
  Sex: Female
  Weight: 64.4 kg

DRUGS (7)
  1. PROVENTIL [Suspect]
     Indication: ASTHMA
     Dosage: 1 TO 2 PUFFS Q4 TO 6 HRS, PRN
     Dates: start: 2012, end: 2012
  2. PROVENTIL [Suspect]
     Indication: CHRONIC OBSTRUCTIVE PULMONARY DISEASE
  3. PROVENTIL [Suspect]
     Indication: DYSPNOEA
  4. MAXAIR [Concomitant]
     Indication: ASTHMA
     Dosage: 1-2 PUFF, PRN
     Route: 045
  5. MAXAIR [Concomitant]
     Indication: CHRONIC OBSTRUCTIVE PULMONARY DISEASE
  6. ZYRTEC [Concomitant]
     Indication: HYPERSENSITIVITY
     Dosage: 1 DF, QD
     Route: 048
  7. XANAX [Concomitant]
     Indication: ANXIETY
     Dosage: 0.5 MG, PRN
     Route: 048

REACTIONS (3)
  - Dyspnoea [Recovered/Resolved]
  - Pruritus [Recovered/Resolved]
  - Cough [Recovered/Resolved]
